FAERS Safety Report 9717059 (Version 1)
Quarter: 2013Q4

REPORT INFORMATION
  Report Type: Spontaneous
  Country: US (occurrence: US)
  Receive Date: 20131127
  Receipt Date: 20131127
  Transmission Date: 20140711
  Serious: No
  Sender: FDA-Public Use
  Company Number: US-GILEAD-2009-0020787

PATIENT
  Age: 80 Year
  Sex: Female
  Weight: 65.32 kg

DRUGS (10)
  1. LETAIRIS [Suspect]
     Indication: PULMONARY ARTERIAL HYPERTENSION
     Route: 048
     Dates: start: 20080813
  2. BENICAR [Concomitant]
  3. VERAPAMIL [Concomitant]
  4. PAXIL [Concomitant]
  5. FOLIC ACID [Concomitant]
  6. FOSAMAX [Concomitant]
  7. K-DUR [Concomitant]
  8. CALCIUM [Concomitant]
  9. OMEPRAZOLE [Concomitant]
  10. XALATAN [Concomitant]

REACTIONS (1)
  - Nasal congestion [Not Recovered/Not Resolved]
